FAERS Safety Report 9995444 (Version 10)
Quarter: 2014Q3

REPORT INFORMATION
  Report Type: Spontaneous
  Country: US (occurrence: None)
  Receive Date: 20140306
  Receipt Date: 20140717
  Transmission Date: 20150326
  Serious: Yes (Death, Hospitalization, Other)
  Sender: FDA-Public Use
  Company Number: ADR-2014-00342

PATIENT
  Age: 24 Year
  Sex: Male
  Weight: 55 kg

DRUGS (13)
  1. LYRICA [Suspect]
     Active Substance: PREGABALIN
     Dosage: 1 TAB
     Route: 048
  2. MIRALAX [Suspect]
     Active Substance: POLYETHYLENE GLYCOL 3350
     Route: 048
  3. BISACODYL. [Suspect]
     Active Substance: BISACODYL
     Dosage: DAILY AS NEEDED
  4. DIAZEPAM. [Suspect]
     Active Substance: DIAZEPAM
     Dosage: PRN
     Route: 048
  5. GABAPENTIN. [Suspect]
     Active Substance: GABAPENTIN
     Route: 048
  6. LIORESAL [Suspect]
     Active Substance: BACLOFEN
     Indication: MUSCLE SPASTICITY
  7. HYDROXYZINE HYDROCHLORIDE. [Suspect]
     Active Substance: HYDROXYZINE HYDROCHLORIDE
     Dosage: AS NEEDED
     Route: 048
  8. CLONAZEPAM. [Suspect]
     Active Substance: CLONAZEPAM
     Dosage: EVERY 8 HOURS/THREE TIMES A DAY
     Route: 048
  9. AMBIEN [Suspect]
     Active Substance: ZOLPIDEM TARTRATE
     Dosage: 1 TABLET
     Route: 048
  10. XANAX [Suspect]
     Active Substance: ALPRAZOLAM
     Route: 048
  11. OXYBUTYNIN [Suspect]
     Active Substance: OXYBUTYNIN
     Dosage: EXTENDED RELEASE
     Route: 048
  12. MIRTAZAPINE. [Suspect]
     Active Substance: MIRTAZAPINE
     Route: 048
  13. BACLOFEN. [Suspect]
     Active Substance: BACLOFEN
     Route: 048

REACTIONS (23)
  - Underdose [None]
  - Drug withdrawal syndrome [None]
  - Priapism [None]
  - Pruritus [None]
  - Hypertonia [None]
  - Anal spasm [None]
  - Muscle spasms [None]
  - Pain in extremity [None]
  - Device extrusion [None]
  - Infection [None]
  - Syringomyelia [None]
  - Overdose [None]
  - Dry mouth [None]
  - Haemorrhoids [None]
  - Incorrect route of drug administration [None]
  - Tremor [None]
  - Device kink [None]
  - Muscle spasticity [None]
  - Device issue [None]
  - Spontaneous penile erection [None]
  - Pain [None]
  - Implant site erosion [None]
  - Device dislocation [None]
